FAERS Safety Report 9275625 (Version 1)
Quarter: 2013Q2

REPORT INFORMATION
  Report Type: Report from Study
  Country: CA (occurrence: CA)
  Receive Date: 20130507
  Receipt Date: 20130507
  Transmission Date: 20140414
  Serious: Yes (Other)
  Sender: FDA-Public Use
  Company Number: CA-JNJFOC-20130418079

PATIENT
  Age: 72 Year
  Sex: Female
  Weight: 54.4 kg

DRUGS (12)
  1. REMICADE [Suspect]
     Indication: CROHN^S DISEASE
     Route: 042
     Dates: start: 201101
  2. VITAMIN B12 [Concomitant]
     Route: 065
  3. WELLBUTRIN [Concomitant]
     Route: 065
  4. SPIRIVA [Concomitant]
     Route: 065
  5. ATENOLOL [Concomitant]
     Route: 065
  6. DOMPERIDONE [Concomitant]
     Route: 065
  7. METHOTREXATE [Concomitant]
     Route: 065
  8. LANSOPRAZOLE [Concomitant]
     Route: 065
  9. LISINOPRIL [Concomitant]
     Route: 065
  10. METOCLOPRAMIDE [Concomitant]
     Route: 065
  11. ADALAT [Concomitant]
     Route: 065
  12. FOLIC ACID [Concomitant]
     Route: 065

REACTIONS (2)
  - Vomiting [Recovered/Resolved]
  - Dehydration [Recovered/Resolved]
